FAERS Safety Report 16236347 (Version 2)
Quarter: 2019Q2

REPORT INFORMATION
  Report Type: Spontaneous
  Country: CA (occurrence: CA)
  Receive Date: 20190425
  Receipt Date: 20190510
  Transmission Date: 20190711
  Serious: Yes (Hospitalization, Other)
  Sender: FDA-Public Use
  Company Number: CA-SA-2019SA111772

PATIENT
  Age: 54 Year
  Sex: Male

DRUGS (8)
  1. AMLODIPINE [Concomitant]
     Active Substance: AMLODIPINE BESYLATE
     Indication: HYPERTENSION
     Dosage: 10 MG, QD
  2. INDAPAMIDE. [Suspect]
     Active Substance: INDAPAMIDE
     Indication: DIURETIC THERAPY
     Dosage: 2.5 MG, QD
  3. FEBUXOSTAT. [Concomitant]
     Active Substance: FEBUXOSTAT
     Indication: GOUT
     Dosage: 80 MG, QD
  4. ROSUVASTATIN. [Concomitant]
     Active Substance: ROSUVASTATIN
     Indication: DYSLIPIDAEMIA
     Dosage: 10 MG, QD
  5. COLECALCIFEROL [Suspect]
     Active Substance: CHOLECALCIFEROL
     Dosage: 8 DROPS, QD; 500 IU PER DROP
  6. COLECALCIFEROL [Suspect]
     Active Substance: CHOLECALCIFEROL
     Dosage: 8-12 DROPS,1000 IU,QD; DAILY DOSADE OF 8000-12000 IU
  7. HYDROXYCHLOROQUINE SULFATE. [Suspect]
     Active Substance: HYDROXYCHLOROQUINE SULFATE
     Indication: HYPERCALCAEMIA
     Dosage: 400 MG, QD
  8. PERINDOPRIL [Concomitant]
     Active Substance: PERINDOPRIL
     Indication: HYPERTENSION
     Dosage: 8 MG, QD

REACTIONS (10)
  - Toxicity to various agents [Recovered/Resolved]
  - Hypercalcaemia [Recovered/Resolved]
  - Chronic kidney disease [Not Recovered/Not Resolved]
  - Product selection error [Recovered/Resolved]
  - Nephrosclerosis [Not Recovered/Not Resolved]
  - Renal failure [Not Recovered/Not Resolved]
  - Pruritus [Recovered/Resolved]
  - Intentional product misuse [Recovered/Resolved]
  - Off label use [Unknown]
  - Acute kidney injury [Recovering/Resolving]
